FAERS Safety Report 6267390-9 (Version None)
Quarter: 2009Q3

REPORT INFORMATION
  Report Type: 
  Country: None (occurrence: None)
  Receive Date: 20090714
  Receipt Date: 20090706
  Transmission Date: 20100115
  Serious: Yes (Hospitalization)
  Sender: FDA-Public Use
  Company Number: US-ELI_LILLY_AND_COMPANY-US200812002170

PATIENT
  Sex: Male
  Weight: 125.62 kg

DRUGS (7)
  1. HUMULIN 70/30 [Suspect]
     Dosage: 35 U, AS NEEDED
     Dates: end: 20080101
  2. HUMULIN 70/30 [Suspect]
     Dosage: 35 U, AS NEEDED
  3. VERAPAMIL [Concomitant]
     Dosage: 120 MG, DAILY (1/D)
  4. ARCOXIA [Concomitant]
     Indication: PAIN
     Dosage: 120 MG, AS NEEDED
  5. ANACIN [Concomitant]
  6. ACETAMINOPHEN [Concomitant]
     Dosage: 325 MG, AS NEEDED
  7. LOSARTAN POTASSIUM AND HYDROCHLOROTHIAZIDE [Concomitant]

REACTIONS (20)
  - CONSTIPATION [None]
  - DIABETES MELLITUS INADEQUATE CONTROL [None]
  - DIABETIC FOOT [None]
  - DIABETIC NEUROPATHY [None]
  - DIARRHOEA [None]
  - GAIT DISTURBANCE [None]
  - HYPERGLYCAEMIA [None]
  - HYPERTENSION [None]
  - HYPOAESTHESIA [None]
  - HYPOGLYCAEMIA [None]
  - MASTICATION DISORDER [None]
  - OEDEMA PERIPHERAL [None]
  - OSTEOPENIA [None]
  - PERIPHERAL VASCULAR DISORDER [None]
  - POLYDIPSIA [None]
  - RENAL FAILURE ACUTE [None]
  - ULCER [None]
  - VASCULAR CALCIFICATION [None]
  - VISION BLURRED [None]
  - WEIGHT INCREASED [None]
